FAERS Safety Report 6695173-4 (Version None)
Quarter: 2010Q2

REPORT INFORMATION
  Report Type: 
  Country: None (occurrence: None)
  Receive Date: 20100423
  Receipt Date: 20100412
  Transmission Date: 20101027
  Serious: Yes (Life-Threatening, Hospitalization)
  Sender: FDA-Public Use
  Company Number: JP-WATSON-2010-05384

PATIENT
  Age: 60 Year
  Sex: Male

DRUGS (3)
  1. NIFEDIPINE ER (WATSON LABORATORIES) [Suspect]
     Indication: DRUG USE FOR UNKNOWN INDICATION
     Dosage: 40 MG, UNK
     Route: 065
  2. TRIAZOLAM (WATSON LABORATORIES) [Suspect]
     Indication: DRUG USE FOR UNKNOWN INDICATION
     Dosage: 2.5 MG, SINGLE
     Route: 048
  3. EPERISONE HYDROCHLORIDE [Suspect]
     Indication: DRUG USE FOR UNKNOWN INDICATION
     Dosage: 5000 MG, SINGLE
     Route: 048

REACTIONS (7)
  - COMA [None]
  - DRUG INTERACTION [None]
  - ELECTROCARDIOGRAM QT PROLONGED [None]
  - HYPOTENSION [None]
  - OVERDOSE [None]
  - SINUS BRADYCARDIA [None]
  - TORSADE DE POINTES [None]
